FAERS Safety Report 9171877 (Version 1)
Quarter: 2013Q1

REPORT INFORMATION
  Report Type: Spontaneous
  Country: US (occurrence: US)
  Receive Date: 20130319
  Receipt Date: 20130319
  Transmission Date: 20140127
  Serious: No
  Sender: FDA-Public Use
  Company Number: US-B.I. PHARMACEUTICALS,INC./RIDGEFIELD-2013-BI-06768BP

PATIENT
  Sex: Female
  Weight: 59 kg

DRUGS (19)
  1. PRADAXA [Suspect]
     Indication: ATRIAL FIBRILLATION
     Dosage: 300 MG
     Route: 048
     Dates: start: 201110
  2. ALLEGRA [Concomitant]
     Dosage: 180 MG
     Route: 048
  3. PROZAC [Concomitant]
     Dosage: 20 MG
     Route: 048
  4. PROTONIX [Concomitant]
     Dosage: 40 MG
     Route: 048
  5. ZOCOR [Concomitant]
     Dosage: 40 MG
     Route: 048
  6. CATAFLAM [Concomitant]
     Indication: ARTHRITIS
     Dosage: 50 MG
     Route: 048
  7. CARDIZEM [Concomitant]
     Dosage: 240 MG
     Route: 048
  8. TRANXENE [Concomitant]
     Dosage: 3.75 MG
     Route: 048
  9. RHINOCORT [Concomitant]
     Route: 045
  10. RYTHMOL [Concomitant]
     Route: 048
  11. XALATAN DROPS [Concomitant]
     Indication: GLAUCOMA
  12. TIMOLOL [Concomitant]
  13. ASMANEX [Concomitant]
     Route: 055
  14. MIRALAX [Concomitant]
     Route: 048
  15. GUAIFENESIN [Concomitant]
     Route: 048
  16. CALCIUM [Concomitant]
     Route: 048
  17. VITAMIN E [Concomitant]
     Route: 048
  18. VITAMIN C [Concomitant]
     Route: 048
  19. MULTIVITAMIN [Concomitant]
     Route: 048

REACTIONS (7)
  - Face oedema [Not Recovered/Not Resolved]
  - Pigmentation disorder [Not Recovered/Not Resolved]
  - Skin disorder [Not Recovered/Not Resolved]
  - Fungal infection [Not Recovered/Not Resolved]
  - Pruritus [Not Recovered/Not Resolved]
  - Intraocular pressure test abnormal [Not Recovered/Not Resolved]
  - Acne [Not Recovered/Not Resolved]
